FAERS Safety Report 20829540 (Version 1)
Quarter: 2022Q2

REPORT INFORMATION
  Report Type: Report from Study
  Country: CN (occurrence: CN)
  Receive Date: 20220513
  Receipt Date: 20220513
  Transmission Date: 20220720
  Serious: Yes (Hospitalization)
  Sender: FDA-Public Use
  Company Number: CN-PFIZER INC-202200651036

PATIENT
  Age: 55 Year
  Sex: Male
  Weight: 54.5 kg

DRUGS (25)
  1. EPIRUBICIN HYDROCHLORIDE [Suspect]
     Active Substance: EPIRUBICIN HYDROCHLORIDE
     Dosage: 40 MG, HEPATIC ARTERY INJECTION
     Dates: start: 20210720, end: 20210720
  2. APATINIB [Suspect]
     Active Substance: APATINIB
     Dosage: 250 MG, 1X/DAY
     Route: 048
     Dates: start: 20210521, end: 20210628
  3. APATINIB [Suspect]
     Active Substance: APATINIB
     Dosage: 250 MG, ALTERNATE DAY
     Route: 048
     Dates: start: 20210630, end: 20210717
  4. APATINIB [Suspect]
     Active Substance: APATINIB
     Dosage: 250 MG, ALTERNATE DAY
     Route: 048
     Dates: start: 20210724, end: 20210807
  5. APATINIB [Suspect]
     Active Substance: APATINIB
     Dosage: 250 MG, ALTERNATE DAY
     Route: 048
     Dates: start: 20210810, end: 20210810
  6. CAMRELIZUMAB [Suspect]
     Active Substance: CAMRELIZUMAB
     Dosage: 200 MG, Q3W, IV INFUSION
     Route: 042
     Dates: start: 20210517, end: 20210629
  7. CAMRELIZUMAB [Suspect]
     Active Substance: CAMRELIZUMAB
     Dosage: 200 MG, Q3W, IV INFUSION
     Route: 042
     Dates: start: 20210726, end: 20210726
  8. METOCLOPRAMIDE [Concomitant]
     Active Substance: METOCLOPRAMIDE
     Indication: Prophylaxis of nausea and vomiting
     Dosage: 20 MG, 1X/DAY, IV INFUSION
     Route: 042
     Dates: start: 20210720, end: 20210722
  9. DOLASETRON MESYLATE [Concomitant]
     Active Substance: DOLASETRON MESYLATE
     Indication: Prophylaxis of nausea and vomiting
     Dosage: 100 MG, 1X/DAY, IV INFUSION
     Route: 042
     Dates: start: 20210720, end: 20210726
  10. DEXTROSE [Concomitant]
     Active Substance: DEXTROSE
     Indication: Nutritional supplementation
     Dosage: 500 ML, 1X/DAY, GLUCOSE SALINE, IV INFUSION
     Route: 042
     Dates: start: 20210720, end: 20210726
  11. COMPOSITE POTASSIUM HYDROGEN PHOSPHATE [Concomitant]
     Indication: Nutritional supplementation
     Dosage: 2 ML, 1X/DAY, IV INFUSION
     Route: 042
     Dates: start: 20210720, end: 20210726
  12. DESMOPRESSIN [Concomitant]
     Active Substance: DESMOPRESSIN
     Indication: Coagulopathy
     Dosage: 13.35 UG, 2X/DAY, IV INFUSION
     Route: 042
     Dates: start: 20210720, end: 20210722
  13. OMEPRAZOLE [Concomitant]
     Active Substance: OMEPRAZOLE
     Indication: Prophylaxis against gastrointestinal ulcer
     Dosage: 40 MG, 2X/DAY, IV INFUSION
     Route: 042
     Dates: start: 20210720, end: 20210726
  14. TORSEMIDE [Concomitant]
     Active Substance: TORSEMIDE
     Indication: Diuretic therapy
     Dosage: 10 MG, 1X/DAY, IV INFUSION
     Route: 042
     Dates: start: 20210720, end: 20210725
  15. ALMAGATE [Concomitant]
     Active Substance: ALMAGATE
     Indication: Prophylaxis against gastrointestinal ulcer
     Dosage: 1.5 G, 3X/DAY, IV INFUSION
     Route: 042
     Dates: start: 20210720, end: 20210726
  16. ACETYLCYSTEINE [Concomitant]
     Active Substance: ACETYLCYSTEINE
     Indication: Prophylaxis
     Dosage: 4 G, 1X/DAY, IV INFUSION
     Route: 042
     Dates: start: 20210720, end: 20210726
  17. ADEMETIONINE BUTANEDISULFONATE [Concomitant]
     Active Substance: ADEMETIONINE BUTANEDISULFONATE
     Indication: Prophylaxis
     Dosage: 1000 MG, 2X/DAY, IV INFUSION
     Route: 042
     Dates: start: 20210720, end: 20210726
  18. PROTEIN HYDROLYSATE [Concomitant]
     Active Substance: PROTEIN HYDROLYSATE
     Indication: Nutritional supplementation
     Dosage: 33 ML, 1X/DAY
     Route: 048
     Dates: start: 20210720, end: 20210722
  19. FAT EMULSION (C14-24) [Concomitant]
     Indication: Nutritional supplementation
     Dosage: 50 G, 1X/DAY, IV INFUSION
     Route: 042
     Dates: start: 20210721, end: 20210725
  20. LACTULOSE [Concomitant]
     Active Substance: LACTULOSE
     Indication: Defaecation disorder
     Dosage: 10 G, 3X/DAY
     Route: 048
     Dates: start: 20210721, end: 20210726
  21. BICYCLOL [Concomitant]
     Active Substance: BICYCLOL
     Indication: Prophylaxis
     Dosage: 50 MG, 3X/DAY
     Route: 048
     Dates: start: 20210722, end: 20210808
  22. POTASSIUM CHLORIDE [Concomitant]
     Active Substance: POTASSIUM CHLORIDE
     Indication: Mineral supplementation
     Dosage: 1 G, 3X/DAY, SUSTAINED RELEASE TABLETS
     Route: 048
     Dates: start: 20210722, end: 20210726
  23. PROMETHAZINE [Concomitant]
     Active Substance: PROMETHAZINE HYDROCHLORIDE
     Indication: Allergy prophylaxis
     Dosage: 25 MG,ONCE, IM INFUSION
     Route: 030
     Dates: start: 20210720, end: 20210720
  24. DICLOFENAC SODIUM [Concomitant]
     Active Substance: DICLOFENAC SODIUM
     Indication: Analgesic therapy
     Dosage: 25 MG, 1X/DAY, SUSTAINED RELEASE TABLETS
     Route: 048
     Dates: start: 20210720, end: 20210721
  25. COMPOUND CODEINE PHOSPHATE AND IBUPROFEN [Concomitant]
     Indication: Analgesic therapy
     Dosage: 0.852 G, ONCE, SUSTAINED RELEASE TABLETS
     Route: 048
     Dates: start: 20210721, end: 20210802

REACTIONS (1)
  - Hepatic function abnormal [Recovering/Resolving]

NARRATIVE: CASE EVENT DATE: 20210722
